FAERS Safety Report 25484492 (Version 1)
Quarter: 2025Q2

REPORT INFORMATION
  Report Type: Spontaneous
  Country: US (occurrence: None)
  Receive Date: 20250626
  Receipt Date: 20250626
  Transmission Date: 20250717
  Serious: Yes (Hospitalization, Other)
  Sender: FDA-CTU
  Company Number: None

PATIENT
  Age: 81 Year
  Sex: Male
  Weight: 77.56 kg

DRUGS (1)
  1. PSEUDOEPHEDRINE HYDROCHLORIDE [Suspect]
     Active Substance: PSEUDOEPHEDRINE HYDROCHLORIDE

REACTIONS (9)
  - Urinary retention [None]
  - Atrial fibrillation [None]
  - Urinary bladder haemorrhage [None]
  - Blood pressure increased [None]
  - Heart rate increased [None]
  - Electrolyte imbalance [None]
  - Renal impairment [None]
  - Thrombosis [None]
  - Asthma [None]

NARRATIVE: CASE EVENT DATE: 20250606
